FAERS Safety Report 9873351 (Version 2)
Quarter: 2014Q1

REPORT INFORMATION
  Report Type: Report from Study
  Country: US (occurrence: US)
  Receive Date: 20140206
  Receipt Date: 20140304
  Transmission Date: 20141002
  Serious: Yes (Other)
  Sender: FDA-Public Use
  Company Number: US-ROCHE-1344608

PATIENT
  Sex: Male

DRUGS (12)
  1. LUCENTIS [Suspect]
     Indication: MACULAR DEGENERATION
     Route: 065
  2. FUROSEMIDE [Concomitant]
  3. SIMVASTATIN [Concomitant]
  4. BYSTOLIC [Concomitant]
  5. WARFARIN [Concomitant]
     Indication: ANTICOAGULANT THERAPY
  6. ALLOPURINOL [Concomitant]
  7. HYDROXYZINE [Concomitant]
     Indication: RASH
  8. HYDROXYZINE [Concomitant]
     Indication: PRURITUS
  9. OMEPRAZOLE [Concomitant]
  10. LISINOPRIL [Concomitant]
  11. COMBIGAN [Concomitant]
     Route: 047
  12. MELATONIN [Concomitant]

REACTIONS (3)
  - Blindness unilateral [Unknown]
  - Eye pain [Unknown]
  - Vision blurred [Unknown]
